FAERS Safety Report 23795399 (Version 1)
Quarter: 2024Q2

REPORT INFORMATION
  Report Type: Spontaneous
  Country: US (occurrence: US)
  Receive Date: 20240429
  Receipt Date: 20240429
  Transmission Date: 20240715
  Serious: Yes (Other)
  Sender: FDA-Public Use
  Company Number: US-NOVOPROD-1104956

PATIENT
  Sex: Female

DRUGS (1)
  1. OZEMPIC [Suspect]
     Active Substance: SEMAGLUTIDE
     Indication: Ex-tobacco user
     Dosage: 0.5 MG, QW
     Route: 058

REACTIONS (2)
  - Breast cancer [Unknown]
  - Off label use [Not Recovered/Not Resolved]
